FAERS Safety Report 25626669 (Version 2)
Quarter: 2025Q3

REPORT INFORMATION
  Report Type: Spontaneous
  Country: CN (occurrence: CN)
  Receive Date: 20250731
  Receipt Date: 20250804
  Transmission Date: 20251021
  Serious: Yes (Other)
  Sender: PFIZER
  Company Number: CN-MLMSERVICE-20250722-PI585338-00150-1

PATIENT
  Age: 51 Year
  Sex: Male

DRUGS (3)
  1. FLUCONAZOLE [Suspect]
     Active Substance: FLUCONAZOLE
     Indication: Disseminated cryptococcosis
     Dosage: 0.4 MG, 1X/DAY
     Route: 042
  2. AMPHOTERICIN B [Suspect]
     Active Substance: AMPHOTERICIN B
     Indication: Disseminated cryptococcosis
     Dosage: GRADUALLY INCREASED FROM 1-40 MG AND CONTINUED FOR A FURTHER 3 WEEKS PERIOD UP TO A CUMULATIVE DOSE
     Route: 042
  3. AMPHOTERICIN B [Suspect]
     Active Substance: AMPHOTERICIN B
     Dosage: GRADUALLY INCREASED FROM 1-40 MG AND CONTINUED FOR A FURTHER 3 WEEKS PERIOD UP TO A CUMULATIVE DOSE
     Route: 042

REACTIONS (4)
  - Blood urea increased [Recovered/Resolved]
  - Blood creatinine increased [Recovered/Resolved]
  - Blood uric acid increased [Recovered/Resolved]
  - Decreased appetite [Unknown]
